FAERS Safety Report 16759730 (Version 1)
Quarter: 2019Q3

REPORT INFORMATION
  Report Type: Spontaneous
  Country: FR (occurrence: FR)
  Receive Date: 20190830
  Receipt Date: 20190830
  Transmission Date: 20191005
  Serious: Yes (Other)
  Sender: FDA-Public Use
  Company Number: FR-UCBSA-2019036785

PATIENT
  Age: 65 Year
  Sex: Male
  Weight: 81.2 kg

DRUGS (6)
  1. KEPPRA [Suspect]
     Active Substance: LEVETIRACETAM
     Indication: POST-ANOXIC MYOCLONUS
     Dosage: UNK
     Route: 048
     Dates: start: 20190805
  2. KEPPRA [Suspect]
     Active Substance: LEVETIRACETAM
     Indication: OFF LABEL USE
  3. NOOTROPYL [Suspect]
     Active Substance: PIRACETAM
     Indication: POST-ANOXIC MYOCLONUS
     Dosage: 12 GRAM DAILY
     Route: 041
     Dates: start: 20190801, end: 20190805
  4. RIVOTRIL [Concomitant]
     Active Substance: CLONAZEPAM
     Indication: POST-ANOXIC MYOCLONUS
     Route: 048
  5. KEPPRA [Suspect]
     Active Substance: LEVETIRACETAM
     Indication: POST-ANOXIC MYOCLONUS
     Dosage: 1000 MILLIGRAM DAILY
     Route: 041
     Dates: start: 20190730, end: 20190805
  6. NOOTROPYL [Suspect]
     Active Substance: PIRACETAM
     Indication: POST-ANOXIC MYOCLONUS
     Dosage: UNK
     Route: 048
     Dates: start: 20190805

REACTIONS (1)
  - Psychomotor hyperactivity [Recovered/Resolved]

NARRATIVE: CASE EVENT DATE: 20190731
